FAERS Safety Report 23097921 (Version 1)
Quarter: 2023Q4

REPORT INFORMATION
  Report Type: Spontaneous
  Country: US (occurrence: US)
  Receive Date: 20231023
  Receipt Date: 20231023
  Transmission Date: 20240110
  Serious: Yes (Hospitalization, Other)
  Sender: FDA-Public Use
  Company Number: US-ALEMBIC PHARMACUETICALS LIMITED-2023SCAL000928

PATIENT

DRUGS (1)
  1. ARIPIPRAZOLE [Suspect]
     Active Substance: ARIPIPRAZOLE
     Indication: Schizophrenia
     Dosage: UNK
     Route: 065

REACTIONS (9)
  - Haemophagocytic lymphohistiocytosis [Recovering/Resolving]
  - Acute respiratory distress syndrome [Recovering/Resolving]
  - Pyrexia [Recovering/Resolving]
  - Haemoglobin decreased [Recovering/Resolving]
  - Platelet count decreased [Recovering/Resolving]
  - Interleukin-2 receptor increased [Recovering/Resolving]
  - Serum ferritin increased [Recovering/Resolving]
  - Hypertriglyceridaemia [Recovering/Resolving]
  - Anaemia [Recovering/Resolving]
